FAERS Safety Report 6007990-4 (Version None)
Quarter: 2008Q4

REPORT INFORMATION
  Report Type: 
  Country: None (occurrence: None)
  Receive Date: 20081217
  Receipt Date: 20080624
  Transmission Date: 20090506
  Serious: No
  Sender: FDA-Public Use
  Company Number: US-ASTRAZENECA-2008UW12710

PATIENT
  Age: 71 Year
  Sex: Female
  Weight: 82.6 kg

DRUGS (7)
  1. CRESTOR [Suspect]
     Indication: BLOOD CHOLESTEROL
     Route: 048
  2. LEVOTHYROXINE SODIUM [Concomitant]
  3. VITAMIN [Concomitant]
  4. METOPROLOL TARTRATE [Concomitant]
  5. PROPOXYPHENE HYDROCHLORIDE [Concomitant]
  6. PRILOSEC [Concomitant]
  7. ASPIRIN [Concomitant]

REACTIONS (5)
  - ERYTHEMA [None]
  - MUSCLE SPASMS [None]
  - MUSCULAR WEAKNESS [None]
  - MYALGIA [None]
  - OEDEMA PERIPHERAL [None]
